FAERS Safety Report 10877113 (Version 3)
Quarter: 2015Q1

REPORT INFORMATION
  Report Type: Spontaneous
  Country: JP (occurrence: JP)
  Receive Date: 20150302
  Receipt Date: 20150320
  Transmission Date: 20150721
  Serious: Yes (Death, Other)
  Sender: FDA-Public Use
  Company Number: JP-JNJFOC-20150211988

PATIENT
  Age: 39 Year
  Sex: Female

DRUGS (9)
  1. REFLEX [Suspect]
     Active Substance: MIRTAZAPINE
     Indication: BIPOLAR DISORDER
     Route: 048
     Dates: start: 20120525
  2. DESYREL [Suspect]
     Active Substance: TRAZODONE HYDROCHLORIDE
     Indication: BIPOLAR DISORDER
     Route: 048
     Dates: start: 20121221
  3. CYMBALTA [Suspect]
     Active Substance: DULOXETINE HYDROCHLORIDE
     Indication: BIPOLAR DISORDER
     Route: 048
     Dates: start: 20120713
  4. HIRNAMIN (LEVOPROMAZINE MALEATE) [Suspect]
     Active Substance: LEVOMEPROMAZINE MALEATE
     Indication: BIPOLAR DISORDER
     Route: 048
     Dates: start: 20121029
  5. SELENICA-R [Suspect]
     Active Substance: SELENIUM
     Indication: BIPOLAR DISORDER
     Route: 048
     Dates: start: 20130215
  6. RIVOTRIL [Suspect]
     Active Substance: CLONAZEPAM
     Indication: BIPOLAR DISORDER
     Route: 048
     Dates: start: 20111205
  7. DEPROMEL [Suspect]
     Active Substance: FLUVOXAMINE
     Indication: BIPOLAR DISORDER
     Route: 048
     Dates: start: 20121102
  8. DOGMATYL [Suspect]
     Active Substance: SULPIRIDE
     Indication: BIPOLAR DISORDER
     Route: 048
     Dates: start: 20121112
  9. RISPERDAL [Suspect]
     Active Substance: RISPERIDONE
     Indication: BIPOLAR DISORDER
     Route: 048
     Dates: start: 20111209, end: 201305

REACTIONS (10)
  - Irritability [Recovered/Resolved]
  - Salivary hypersecretion [Recovered/Resolved]
  - Asphyxia [Fatal]
  - Product use issue [Unknown]
  - Aspiration [Fatal]
  - Restlessness [Recovered/Resolved]
  - Fatigue [Unknown]
  - Dizziness [Recovered/Resolved]
  - Psychomotor hyperactivity [Unknown]
  - Dysphagia [Recovered/Resolved]

NARRATIVE: CASE EVENT DATE: 201302
